FAERS Safety Report 18639782 (Version 1)
Quarter: 2020Q4

REPORT INFORMATION
  Report Type: Spontaneous
  Country: GB (occurrence: GB)
  Receive Date: 20201220
  Receipt Date: 20201220
  Transmission Date: 20210114
  Serious: Yes (Other)
  Sender: FDA-Public Use
  Company Number: NVSC2020GB332413

PATIENT
  Age: 56 Year
  Sex: Male
  Weight: 94 kg

DRUGS (2)
  1. ATORVASTATIN [Suspect]
     Active Substance: ATORVASTATIN
     Indication: HYPERCHOLESTEROLAEMIA
     Dosage: 20 MG
     Route: 048
     Dates: start: 20200202
  2. ATORVASTATIN [Suspect]
     Active Substance: ATORVASTATIN
     Dosage: 40 MG
     Route: 048
     Dates: start: 2020, end: 20201106

REACTIONS (4)
  - Rash pustular [Unknown]
  - Acute generalised exanthematous pustulosis [Recovering/Resolving]
  - Pustular psoriasis [Recovering/Resolving]
  - Nail dystrophy [Unknown]

NARRATIVE: CASE EVENT DATE: 20200722
